FAERS Safety Report 19778690 (Version 3)
Quarter: 2021Q4

REPORT INFORMATION
  Report Type: Report from Study
  Country: US (occurrence: US)
  Receive Date: 20210902
  Receipt Date: 20211108
  Transmission Date: 20220303
  Serious: No
  Sender: FDA-Public Use
  Company Number: NVSC2021US198309

PATIENT
  Sex: Male
  Weight: 75.283 kg

DRUGS (1)
  1. TREPROSTINIL [Suspect]
     Active Substance: TREPROSTINIL
     Indication: Pulmonary arterial hypertension
     Dosage: 45 NG/KG/MIN, CONT
     Route: 058
     Dates: start: 20210708

REACTIONS (5)
  - Injection site swelling [Unknown]
  - Injection site discomfort [Unknown]
  - Abdominal pain [Unknown]
  - Myalgia [Unknown]
  - Dyspnoea [Unknown]
